FAERS Safety Report 8974099 (Version 1)
Quarter: 2013Q1

REPORT INFORMATION
  Report Type: Spontaneous
  Country: US (occurrence: None)
  Receive Date: 20121217
  Receipt Date: 20121217
  Transmission Date: 20140127
  Serious: Yes (Other)
  Sender: FDA-Public Use
  Company Number: None

PATIENT
  Age: 26 Year
  Sex: Female
  Weight: 167.83 kg

DRUGS (1)
  1. FONDAPARINUX SODIUM (ARIXTRA) [Suspect]
     Indication: THROMBOSIS PROPHYLAXIS
     Dosage: 5MG; ONCE/DAY;057
     Dates: start: 20120228, end: 20120302

REACTIONS (2)
  - Haemorrhage [None]
  - False positive investigation result [None]
